FAERS Safety Report 17717749 (Version 2)
Quarter: 2021Q4

REPORT INFORMATION
  Report Type: Spontaneous
  Country: DE (occurrence: DE)
  Receive Date: 20200428
  Receipt Date: 20211214
  Transmission Date: 20220304
  Serious: Yes (Hospitalization)
  Sender: FDA-Public Use
  Company Number: DE-ACCORD-176909

PATIENT
  Sex: Female
  Weight: 67 kg

DRUGS (5)
  1. PEGFILGRASTIM [Suspect]
     Active Substance: PEGFILGRASTIM
     Indication: Product used for unknown indication
     Dosage: ( STRENGTH: 6 MG (1ST CYCLE)
     Route: 058
     Dates: start: 20200109
  2. PEGFILGRASTIM [Suspect]
     Active Substance: PEGFILGRASTIM
     Dosage: (STRENGTH: 6 MG (2 ND CYCLE)
     Route: 058
     Dates: start: 20200130
  3. PEGFILGRASTIM [Suspect]
     Active Substance: PEGFILGRASTIM
     Dosage: ( STRENGTH: 6 MG (3RD CYCLE)
     Route: 058
     Dates: start: 20200220
  4. ETOPOSIDE [Suspect]
     Active Substance: ETOPOSIDE
     Indication: Bronchial carcinoma
     Dosage: 220 MILLIGRAM
     Route: 042
     Dates: start: 20200108, end: 20200219
  5. CARBOPLATIN [Suspect]
     Active Substance: CARBOPLATIN
     Indication: Bronchial carcinoma
     Dosage: 485 MILLIGRAM
     Route: 042
     Dates: start: 20200108, end: 20200217

REACTIONS (1)
  - Gastroenteritis [Recovered/Resolved]

NARRATIVE: CASE EVENT DATE: 20200222
